FAERS Safety Report 7726290-5 (Version None)
Quarter: 2011Q3

REPORT INFORMATION
  Report Type: 
  Country: None (occurrence: None)
  Receive Date: 20110902
  Receipt Date: 20110822
  Transmission Date: 20111222
  Serious: Yes (Other)
  Sender: FDA-Public Use
  Company Number: US-JNJFOC-20110810191

PATIENT
  Sex: Male

DRUGS (16)
  1. CRESTOR [Concomitant]
  2. CAVERJECT [Concomitant]
  3. NORVASC [Concomitant]
  4. HYDROCODONE BITARTRATE AND ACETAMINOPHEN [Concomitant]
  5. QUINAPRIL HCL [Concomitant]
  6. SELZENTRY [Concomitant]
  7. ASPIRIN [Concomitant]
  8. DICLOFENAC SODIUM [Concomitant]
  9. TESTOSTERONE ENANTHATE [Concomitant]
  10. GARDASIL [Concomitant]
     Dates: start: 20101001
  11. PREZISTA [Suspect]
     Indication: PRODUCT USED FOR UNKNOWN INDICATION
     Route: 048
     Dates: start: 20080501
  12. NORVIR [Concomitant]
  13. TRUVADA [Concomitant]
  14. ATIVAN [Concomitant]
  15. INTELENCE [Suspect]
     Indication: PRODUCT USED FOR UNKNOWN INDICATION
     Route: 048
     Dates: start: 20080801
  16. BACLOFEN [Concomitant]

REACTIONS (2)
  - DYSTONIA [None]
  - TARDIVE DYSKINESIA [None]
